FAERS Safety Report 18071627 (Version 1)
Quarter: 2020Q3

REPORT INFORMATION
  Report Type: Spontaneous
  Country: FR (occurrence: FR)
  Receive Date: 20200727
  Receipt Date: 20200727
  Transmission Date: 20201103
  Serious: Yes (Other)
  Sender: FDA-Public Use
  Company Number: FR-AUROBINDO-AUR-APL-2020-036391

PATIENT
  Age: 23 Year
  Sex: Female

DRUGS (7)
  1. PARACETAMOL [Suspect]
     Active Substance: ACETAMINOPHEN
     Indication: ANALGESIC THERAPY
     Dosage: 1 GRAM (1 TOTAL)
     Route: 042
     Dates: start: 20200618, end: 20200618
  2. PROPOFOL. [Suspect]
     Active Substance: PROPOFOL
     Indication: ANALGESIC THERAPY
     Dosage: 200 MILLIGRAM(1 TOTAL)
     Route: 042
     Dates: start: 20200618, end: 20200618
  3. DROLEPTAN [Suspect]
     Active Substance: DROPERIDOL
     Indication: PROPHYLAXIS OF NAUSEA AND VOMITING
     Dosage: 1.25 MILLIGRAM(1 TOTAL)
     Route: 042
     Dates: start: 20200618, end: 20200618
  4. KETAMINE [Suspect]
     Active Substance: KETAMINE
     Indication: ANALGESIC THERAPY
     Dosage: 10 MILLIGRAM(1 TOTAL)
     Route: 042
     Dates: start: 20200618, end: 20200618
  5. OXYTOCIN. [Suspect]
     Active Substance: OXYTOCIN
     Indication: PROPHYLAXIS
     Dosage: 10 INTERNATIONAL UNIT(1 TOTAL)
     Route: 042
     Dates: start: 20200618, end: 20200618
  6. ACUPAN [Suspect]
     Active Substance: NEFOPAM HYDROCHLORIDE
     Indication: PAIN
     Dosage: 20 MILLIGRAM(1 TOTAL)
     Route: 042
     Dates: start: 20200618, end: 20200618
  7. CEFAZOLIN [Suspect]
     Active Substance: CEFAZOLIN
     Indication: PROPHYLAXIS
     Dosage: 2 GRAM(1 TOTAL)
     Route: 040
     Dates: start: 20200618, end: 20200618

REACTIONS (2)
  - Eyelid oedema [Recovered/Resolved]
  - Gaze palsy [Recovered/Resolved]

NARRATIVE: CASE EVENT DATE: 20200618
